FAERS Safety Report 16930392 (Version 1)
Quarter: 2019Q4

REPORT INFORMATION
  Report Type: Report from Study
  Country: None (occurrence: RO)
  Receive Date: 20191017
  Receipt Date: 20191017
  Transmission Date: 20200122
  Serious: Yes (Hospitalization)
  Sender: FDA-Public Use
  Company Number: RO-ABBVIE-19K-135-2967089-00

PATIENT
  Sex: Female

DRUGS (1)
  1. DUODOPA [Suspect]
     Active Substance: CARBIDOPA\LEVODOPA
     Indication: PARKINSON^S DISEASE
     Dosage: DM=7.00?DC=5.70?ED=2.50?NRED=0;?DMN=0.00?DCN=4.60?EDN=4.60?NREDN=0
     Route: 050
     Dates: start: 20150522

REACTIONS (3)
  - Hallucination [Not Recovered/Not Resolved]
  - Somnolence [Recovering/Resolving]
  - Impulsive behaviour [Recovering/Resolving]

NARRATIVE: CASE EVENT DATE: 2018
